FAERS Safety Report 23804331 (Version 1)
Quarter: 2024Q2

REPORT INFORMATION
  Report Type: Spontaneous
  Country: US (occurrence: None)
  Receive Date: 20240501
  Receipt Date: 20240501
  Transmission Date: 20240716
  Serious: Yes (Other)
  Sender: FDA-Public Use
  Company Number: 2024A097915

PATIENT
  Age: 46 Year
  Sex: Female

DRUGS (1)
  1. SEROQUEL [Suspect]
     Active Substance: QUETIAPINE FUMARATE
     Dosage: UNKNOWN
     Route: 048

REACTIONS (11)
  - Drug dependence [Unknown]
  - Female reproductive tract disorder [Unknown]
  - Premature delivery [Unknown]
  - Amnesia [Unknown]
  - Sleep disorder [Not Recovered/Not Resolved]
  - Stillbirth [Unknown]
  - Exposure during pregnancy [Unknown]
  - Extra dose administered [Unknown]
  - Sedation [Unknown]
  - Depressed mood [Unknown]
  - Decreased activity [Unknown]

NARRATIVE: CASE EVENT DATE: 20230101
